FAERS Safety Report 16105760 (Version 2)
Quarter: 2019Q1

REPORT INFORMATION
  Report Type: Spontaneous
  Country: KR (occurrence: KR)
  Receive Date: 20190322
  Receipt Date: 20190328
  Transmission Date: 20190418
  Serious: Yes (Other)
  Sender: FDA-Public Use
  Company Number: KR-ABBVIE-19P-090-2715790-00

PATIENT
  Sex: Female

DRUGS (2)
  1. LIPIDIL SUPRA [Suspect]
     Active Substance: FENOFIBRATE
     Indication: PRODUCT USED FOR UNKNOWN INDICATION
     Dosage: 1T QD; DAILY DOSE: 1 TABLET
     Route: 048
     Dates: start: 20190320, end: 20190321
  2. ALBIS [Concomitant]
     Active Substance: BISMUTH SUBCITRATE\RANITIDINE HYDROCHLORIDE\SUCRALFATE
     Indication: PRODUCT USED FOR UNKNOWN INDICATION
     Route: 048
     Dates: start: 20190320

REACTIONS (2)
  - Face oedema [Unknown]
  - Rash generalised [Unknown]

NARRATIVE: CASE EVENT DATE: 201903
